FAERS Safety Report 4464148-8 (Version None)
Quarter: 2004Q3

REPORT INFORMATION
  Report Type: 
  Country: None (occurrence: None)
  Receive Date: 20040929
  Receipt Date: 20040929
  Transmission Date: 20050211
  Serious: Yes (Hospitalization)
  Sender: FDA-Public Use
  Company Number: None

PATIENT
  Age: 62 Year
  Sex: Male
  Weight: 57.4 kg

DRUGS (7)
  1. IRESSA [Suspect]
     Indication: NEOPLASM RECURRENCE
     Dosage: 250 MG QD ORAL
     Route: 048
     Dates: start: 20040730, end: 20040919
  2. IRESSA [Suspect]
     Indication: SQUAMOUS CELL CARCINOMA
     Dosage: 250 MG QD ORAL
     Route: 048
     Dates: start: 20040730, end: 20040919
  3. D5NS HYDRATION [Concomitant]
  4. COLACE [Concomitant]
  5. ZOFRAN [Concomitant]
  6. ROBITUSSIN [Concomitant]
  7. MYLANTA [Concomitant]

REACTIONS (13)
  - DEHYDRATION [None]
  - ENTERAL NUTRITION [None]
  - HAEMOLYSIS [None]
  - HEART RATE INCREASED [None]
  - HYPERBILIRUBINAEMIA [None]
  - HYPOKALAEMIA [None]
  - HYPOMAGNESAEMIA [None]
  - HYPONATRAEMIA [None]
  - MARKEDLY REDUCED DIETARY INTAKE [None]
  - POST PROCEDURAL NAUSEA [None]
  - POST PROCEDURAL VOMITING [None]
  - PYREXIA [None]
  - RESPIRATORY RATE INCREASED [None]
